FAERS Safety Report 5485916-X (Version None)
Quarter: 2007Q4

REPORT INFORMATION
  Report Type: 
  Country: None (occurrence: None)
  Receive Date: 20071015
  Receipt Date: 20071002
  Transmission Date: 20080405
  Serious: Yes (Other)
  Sender: FDA-Public Use
  Company Number: BE-SHR-BE-2007-037752

PATIENT

DRUGS (1)
  1. CAMPATH [Suspect]
     Dosage: INFUSION

REACTIONS (1)
  - BLINDNESS [None]
